FAERS Safety Report 15662795 (Version 4)
Quarter: 2020Q3

REPORT INFORMATION
  Report Type: Spontaneous
  Country: US (occurrence: US)
  Receive Date: 20181127
  Receipt Date: 20200708
  Transmission Date: 20201102
  Serious: Yes (Other)
  Sender: FDA-Public Use
  Company Number: US-SA-2018SA175157

PATIENT

DRUGS (8)
  1. TAXOTERE [Suspect]
     Active Substance: DOCETAXEL
     Indication: BREAST CANCER FEMALE
     Dosage: 80 UNK, QOW
     Route: 042
     Dates: start: 20111003, end: 20111003
  2. ACTINOMYCIN C [Concomitant]
     Active Substance: CACTINOMYCIN
     Indication: BREAST CANCER FEMALE
     Route: 065
  3. BACITRACIN. [Concomitant]
     Active Substance: BACITRACIN
     Dosage: UNK
     Dates: start: 20080101
  4. NEOSAR [Concomitant]
     Active Substance: CYCLOPHOSPHAMIDE
     Indication: BREAST CANCER FEMALE
     Route: 065
  5. AMBIEN [Concomitant]
     Active Substance: ZOLPIDEM TARTRATE
     Dosage: UNK
     Dates: start: 2001
  6. TAXOTERE [Suspect]
     Active Substance: DOCETAXEL
     Dosage: 80 UNK, QOW
     Route: 042
     Dates: start: 20111121, end: 20111121
  7. GABAPENTIN. [Concomitant]
     Active Substance: GABAPENTIN
     Dosage: UNK
     Dates: start: 20080101
  8. COUMADIN [Concomitant]
     Active Substance: WARFARIN SODIUM
     Dosage: UNK
     Dates: start: 20080101

REACTIONS (2)
  - Alopecia [Recovering/Resolving]
  - Psychological trauma [Unknown]

NARRATIVE: CASE EVENT DATE: 20111015
